FAERS Safety Report 22224313 (Version 1)
Quarter: 2023Q2

REPORT INFORMATION
  Report Type: Report from Study
  Country: US (occurrence: US)
  Receive Date: 20230418
  Receipt Date: 20230418
  Transmission Date: 20230722
  Serious: Yes (Other)
  Sender: FDA-Public Use
  Company Number: US-UCBSA-2023012109

PATIENT
  Age: 19 Year
  Sex: Female

DRUGS (26)
  1. LEVETIRACETAM [Suspect]
     Active Substance: LEVETIRACETAM
     Indication: Seizure
     Dosage: UNK
  2. LEVETIRACETAM [Suspect]
     Active Substance: LEVETIRACETAM
     Dosage: 2250 MILLIGRAM, 2X/DAY (BID)
     Dates: start: 202108
  3. NAYZILAM [Suspect]
     Active Substance: MIDAZOLAM
     Indication: Seizure
     Dosage: 5 MILLIGRAM INTO 1 NOSTRIL
     Route: 045
  4. ZONEGRAN [Concomitant]
     Active Substance: ZONISAMIDE
     Indication: Product used for unknown indication
  5. ATIVAN [Concomitant]
     Active Substance: LORAZEPAM
     Indication: Seizure
  6. MUCINEX [Concomitant]
     Active Substance: GUAIFENESIN
     Indication: Product used for unknown indication
  7. ALBUTEROL SULFATE [Concomitant]
     Active Substance: ALBUTEROL SULFATE
     Indication: Product used for unknown indication
  8. CIPROFLOXACIN [Concomitant]
     Active Substance: CIPROFLOXACIN
     Indication: Product used for unknown indication
  9. VENTOLIN HFA [Concomitant]
     Active Substance: ALBUTEROL SULFATE
     Indication: Product used for unknown indication
  10. ALUMINUM HYDROXIDE\DIMETHICONE\MAGNESIUM HYDROXIDE [Concomitant]
     Active Substance: ALUMINUM HYDROXIDE\DIMETHICONE\MAGNESIUM HYDROXIDE
     Indication: Product used for unknown indication
  11. SYMBICORT [Concomitant]
     Active Substance: BUDESONIDE\FORMOTEROL FUMARATE DIHYDRATE
     Indication: Product used for unknown indication
  12. EPIPEN [Concomitant]
     Active Substance: EPINEPHRINE
     Indication: Product used for unknown indication
  13. LEXAPRO [Concomitant]
     Active Substance: ESCITALOPRAM OXALATE
     Indication: Product used for unknown indication
  14. FERROUS SULFATE [Concomitant]
     Active Substance: FERROUS SULFATE
     Indication: Product used for unknown indication
  15. FLONASE [Concomitant]
     Active Substance: FLUTICASONE PROPIONATE
     Indication: Product used for unknown indication
  16. FLOVENT HFA [Concomitant]
     Active Substance: FLUTICASONE PROPIONATE
     Indication: Product used for unknown indication
  17. HYDROXYZINE PAMOATE [Concomitant]
     Active Substance: HYDROXYZINE PAMOATE
     Indication: Product used for unknown indication
  18. OSCIMIN [Concomitant]
     Active Substance: HYOSCYAMINE SULFATE
     Indication: Product used for unknown indication
  19. MOTRIN [Concomitant]
     Active Substance: IBUPROFEN
     Indication: Product used for unknown indication
  20. MELATONIN [Concomitant]
     Active Substance: MELATONIN
     Indication: Product used for unknown indication
  21. THERAGRAN [ASCORBIC ACID;CALCIUM PANTOTHENATE;COLECALCIFEROL;CYANOCOBA [Concomitant]
     Indication: Product used for unknown indication
  22. PRILOSEC [Concomitant]
     Active Substance: OMEPRAZOLE MAGNESIUM
     Indication: Product used for unknown indication
  23. ZOFRAN [Concomitant]
     Active Substance: ONDANSETRON HYDROCHLORIDE
     Indication: Product used for unknown indication
  24. GLYCOLAX [Concomitant]
     Active Substance: POLYETHYLENE GLYCOL 3350
     Indication: Product used for unknown indication
  25. CARAFATE [Concomitant]
     Active Substance: SUCRALFATE
     Indication: Product used for unknown indication
  26. COVID-19 VACCINE [Concomitant]
     Indication: Immunisation

REACTIONS (12)
  - Seizure [Unknown]
  - Status epilepticus [Unknown]
  - Mood swings [Unknown]
  - Illness [Unknown]
  - Irritability [Unknown]
  - Agitation [Unknown]
  - Diplopia [Unknown]
  - Nausea [Unknown]
  - Hiccups [Unknown]
  - Off label use [Unknown]
  - Overdose [Unknown]
  - COVID-19 immunisation [Unknown]

NARRATIVE: CASE EVENT DATE: 20210801
